FAERS Safety Report 4719481-9 (Version None)
Quarter: 2005Q3

REPORT INFORMATION
  Report Type: 
  Country: None (occurrence: None)
  Receive Date: 20050721
  Receipt Date: 20050713
  Transmission Date: 20060218
  Serious: Yes (Hospitalization)
  Sender: FDA-Public Use
  Company Number: FR-BRISTOL-MYERS SQUIBB COMPANY-13036504

PATIENT
  Age: 70 Year
  Sex: Male

DRUGS (4)
  1. TAXOL [Suspect]
     Indication: THYROID CANCER METASTATIC
     Dosage: STARTED THERAPY IN JAN 2005.
     Route: 042
     Dates: start: 20050601, end: 20050601
  2. ELISOR [Concomitant]
  3. NEORECORMON [Concomitant]
  4. LEVOTHYROX [Concomitant]

REACTIONS (3)
  - BLOOD OSMOLARITY DECREASED [None]
  - HYPOKALAEMIA [None]
  - HYPONATRAEMIA [None]
